FAERS Safety Report 5140775-X (Version None)
Quarter: 2006Q4

REPORT INFORMATION
  Report Type: 
  Country: None (occurrence: None)
  Receive Date: 20061024
  Receipt Date: 20061005
  Transmission Date: 20070319
  Serious: Yes (Hospitalization, Other)
  Sender: FDA-Public Use
  Company Number: FR200609007236

PATIENT
  Age: 53 Year
  Sex: Female

DRUGS (6)
  1. ZYPREXA [Suspect]
     Indication: BIPOLAR DISORDER
     Dosage: SEE IMAGE
     Dates: start: 20060101, end: 20060101
  2. ZYPREXA [Suspect]
     Indication: BIPOLAR DISORDER
     Dosage: SEE IMAGE
     Dates: start: 20060101, end: 20060101
  3. ZYPREXA [Suspect]
     Indication: BIPOLAR DISORDER
     Dosage: SEE IMAGE
     Dates: start: 20030101
  4. VALPROATE SODIUM [Concomitant]
  5. ESCITALOPRAM OXALATE [Concomitant]
  6. IMOVANE (ZOPICLONE) [Concomitant]

REACTIONS (4)
  - ACUTE CORONARY SYNDROME [None]
  - DIABETES MELLITUS NON-INSULIN-DEPENDENT [None]
  - HYPERGLYCAEMIA [None]
  - WEIGHT INCREASED [None]
